FAERS Safety Report 10203700 (Version 1)
Quarter: 2014Q2

REPORT INFORMATION
  Report Type: Spontaneous
  Country: BE (occurrence: BE)
  Receive Date: 20140529
  Receipt Date: 20140529
  Transmission Date: 20141212
  Serious: No
  Sender: FDA-Public Use
  Company Number: BE-JNJFOC-20140517413

PATIENT
  Age: 35 Year
  Sex: 0
  Weight: 130 kg

DRUGS (3)
  1. STELARA [Suspect]
     Indication: PRODUCT USED FOR UNKNOWN INDICATION
     Route: 058
  2. NICOTIBINE [Suspect]
     Indication: LATENT TUBERCULOSIS
     Route: 065
  3. RIFADINE [Concomitant]
     Indication: ANTIBIOTIC PROPHYLAXIS
     Route: 065

REACTIONS (1)
  - Liver function test abnormal [Recovered/Resolved]
